FAERS Safety Report 18143286 (Version 1)
Quarter: 2020Q3

REPORT INFORMATION
  Report Type: Report from Study
  Country: ID (occurrence: ID)
  Receive Date: 20200812
  Receipt Date: 20200812
  Transmission Date: 20201103
  Serious: Yes (Death, Hospitalization)
  Sender: FDA-Public Use
  Company Number: ID-SEATTLE GENETICS-2020SGN02005

PATIENT
  Sex: Female

DRUGS (1)
  1. BRENTUXIMAB VEDOTIN [Suspect]
     Active Substance: BRENTUXIMAB VEDOTIN
     Indication: HODGKIN^S DISEASE
     Dosage: 150 MILLIGRAM
     Route: 065
     Dates: start: 20190919

REACTIONS (3)
  - Haemoglobin decreased [Unknown]
  - Death [Fatal]
  - General physical health deterioration [Unknown]
